FAERS Safety Report 17879960 (Version 2)
Quarter: 2020Q2

REPORT INFORMATION
  Report Type: Spontaneous
  Country: BE (occurrence: BE)
  Receive Date: 20200610
  Receipt Date: 20200616
  Transmission Date: 20200714
  Serious: Yes (Other)
  Sender: FDA-Public Use
  Company Number: BE-009507513-2006BEL002082

PATIENT
  Age: 28 Year
  Sex: Female

DRUGS (2)
  1. EPACADOSTAT [Suspect]
     Active Substance: EPACADOSTAT
     Indication: METASTATIC MALIGNANT MELANOMA
     Dosage: 100 MILLIGRAM, Q3; A TOTAL OF 4 DOSES
     Route: 048
     Dates: start: 20170118, end: 20170322
  2. PEMBROLIZUMAB. [Suspect]
     Active Substance: PEMBROLIZUMAB
     Indication: METASTATIC MALIGNANT MELANOMA
     Dosage: 200 MILLIGRAM, Q3W; A TOTAL OF 4 DOSES
     Route: 042
     Dates: start: 20170118, end: 20170322

REACTIONS (1)
  - Osteonecrosis of jaw [Not Recovered/Not Resolved]

NARRATIVE: CASE EVENT DATE: 20170215
